FAERS Safety Report 7048464-1 (Version None)
Quarter: 2010Q4

REPORT INFORMATION
  Report Type: 
  Country: None (occurrence: None)
  Receive Date: 20101015
  Receipt Date: 20101015
  Transmission Date: 20110411
  Serious: No
  Sender: FDA-Public Use
  Company Number: None

PATIENT
  Sex: Female

DRUGS (1)
  1. GENOTROPIN [Suspect]
     Dosage: 6 MG SC INJECT 0.6MG SUBCUTANEOUSLY 7 DAYS A WEEK
     Route: 058

REACTIONS (4)
  - CHEMICAL INJURY [None]
  - FEELING ABNORMAL [None]
  - PALPITATIONS [None]
  - SKIN ULCER [None]
